FAERS Safety Report 13611726 (Version 1)
Quarter: 2017Q2

REPORT INFORMATION
  Report Type: Report from Study
  Country: None (occurrence: DE)
  Receive Date: 20170605
  Receipt Date: 20170605
  Transmission Date: 20170830
  Serious: Yes (Hospitalization)
  Sender: FDA-Public Use
  Company Number: DE-ABBVIE-17K-062-1994376-00

PATIENT
  Age: 51 Year
  Sex: Male

DRUGS (1)
  1. HUMIRA [Suspect]
     Active Substance: ADALIMUMAB
     Indication: PSORIASIS
     Route: 058
     Dates: start: 20170427

REACTIONS (3)
  - Balance disorder [Recovered/Resolved]
  - Hypoacusis [Recovered/Resolved]
  - Vestibular disorder [Recovered/Resolved]

NARRATIVE: CASE EVENT DATE: 20170523
